FAERS Safety Report 9953499 (Version 1)
Quarter: 2014Q1

REPORT INFORMATION
  Report Type: Spontaneous
  Country: US (occurrence: US)
  Receive Date: 20140304
  Receipt Date: 20140304
  Transmission Date: 20141002
  Serious: No
  Sender: FDA-Public Use
  Company Number: US-009507513-1402USA008977

PATIENT
  Sex: Male

DRUGS (1)
  1. EMEND [Suspect]
     Dosage: UNK
     Route: 048
     Dates: start: 2013

REACTIONS (3)
  - Wrong technique in drug usage process [Unknown]
  - Product physical issue [Unknown]
  - No adverse event [Unknown]
